FAERS Safety Report 7678105-1 (Version None)
Quarter: 2011Q3

REPORT INFORMATION
  Report Type: 
  Country: None (occurrence: None)
  Receive Date: 20110811
  Receipt Date: 20110810
  Transmission Date: 20111222
  Serious: Yes (Other)
  Sender: FDA-Public Use
  Company Number: US-BRISTOL-MYERS SQUIBB COMPANY-15213663

PATIENT
  Age: 61 Year
  Sex: Female
  Weight: 96 kg

DRUGS (5)
  1. ONGLYZA [Suspect]
     Indication: TYPE 2 DIABETES MELLITUS
     Dosage: RESTARTED JUN10,AROUND 22-JUN-2010,07DEC2010 LOT#9L6014A; EXP DATE:NOV2012
     Dates: start: 20100401
  2. LISINOPRIL [Concomitant]
  3. GLUCOPHAGE [Concomitant]
  4. GLIPIZIDE [Concomitant]
     Dosage: GLIPIZIDE ER
  5. LUMIGAN [Concomitant]

REACTIONS (22)
  - WEIGHT INCREASED [None]
  - FATIGUE [None]
  - HEADACHE [None]
  - CHILLS [None]
  - BLADDER PAIN [None]
  - URINARY TRACT INFECTION [None]
  - PAIN [None]
  - ABDOMINAL PAIN UPPER [None]
  - MEMORY IMPAIRMENT [None]
  - RENAL PAIN [None]
  - MUSCULAR WEAKNESS [None]
  - URETHRAL PAIN [None]
  - RENAL DISORDER [None]
  - NAUSEA [None]
  - ABDOMINAL DISTENSION [None]
  - MUSCULOSKELETAL STIFFNESS [None]
  - DANDRUFF [None]
  - DRY SKIN [None]
  - DRUG INEFFECTIVE [None]
  - NON-CARDIAC CHEST PAIN [None]
  - BALANCE DISORDER [None]
  - ASTHENIA [None]
